FAERS Safety Report 5196827-1 (Version None)
Quarter: 2006Q4

REPORT INFORMATION
  Report Type: 
  Country: None (occurrence: None)
  Receive Date: 20061227
  Receipt Date: 20061213
  Transmission Date: 20070319
  Serious: Yes (Other)
  Sender: FDA-Public Use
  Company Number: 2006154015

PATIENT
  Age: 54 Year
  Sex: Male
  Weight: 118.8424 kg

DRUGS (11)
  1. NEURONTIN [Suspect]
     Indication: NERVE INJURY
     Dosage: 1800 MG (1800 MG, 1 IN 1 D)
     Dates: start: 19980101
  2. GABAPENTIN [Suspect]
     Indication: NERVE INJURY
     Dosage: 1800 MG (1800 MG, 1IN 1 D)
     Dates: start: 20051001, end: 20051205
  3. CELEBREX [Concomitant]
  4. AMITRIPTYLINE HCL [Concomitant]
  5. PRAVACHOL [Concomitant]
  6. NEXIUM [Concomitant]
  7. TOPROL-XL [Concomitant]
  8. LOTREL [Concomitant]
  9. HYDROCORTISONE (HYDRCORTISONE) [Concomitant]
  10. GLUCOSAMINE (GLUCOSAMINE) [Concomitant]
  11. MULTIVITAMIN [Concomitant]

REACTIONS (8)
  - ABASIA [None]
  - ARTHRITIS INFECTIVE [None]
  - DYSARTHRIA [None]
  - FALL [None]
  - MENISCUS LESION [None]
  - PHARMACEUTICAL PRODUCT COMPLAINT [None]
  - ROAD TRAFFIC ACCIDENT [None]
  - WRIST FRACTURE [None]
